FAERS Safety Report 6269095-7 (Version None)
Quarter: 2009Q3

REPORT INFORMATION
  Report Type: 
  Country: None (occurrence: None)
  Receive Date: 20090715
  Receipt Date: 20090706
  Transmission Date: 20100115
  Serious: Yes (Life-Threatening, Hospitalization, Other)
  Sender: FDA-Public Use
  Company Number: GB-MERCK-0904GBR00063

PATIENT
  Age: 26 Year

DRUGS (6)
  1. CANCIDAS [Suspect]
     Indication: FUNGAL INFECTION
     Route: 051
     Dates: start: 20090227, end: 20090323
  2. VORICONAZOLE [Concomitant]
     Indication: FUNGAL INFECTION
     Route: 065
     Dates: start: 20090227
  3. PREDNISOLONE [Concomitant]
     Indication: IMMUNOSUPPRESSION
     Route: 065
  4. MYCOPHENOLATE MOFETIL [Concomitant]
     Indication: IMMUNOSUPPRESSION
     Route: 065
  5. TACROLIMUS [Concomitant]
     Indication: IMMUNOSUPPRESSION
     Route: 065
  6. TACROLIMUS [Concomitant]
     Route: 065

REACTIONS (1)
  - DRUG RESISTANCE [None]
